FAERS Safety Report 7652493-4 (Version None)
Quarter: 2011Q3

REPORT INFORMATION
  Report Type: 
  Country: None (occurrence: None)
  Receive Date: 20110803
  Receipt Date: 20110801
  Transmission Date: 20111222
  Serious: Yes (Hospitalization)
  Sender: FDA-Public Use
  Company Number: JP-ABBOTT-10P-087-0682219-00

PATIENT
  Sex: Female

DRUGS (5)
  1. METHOTREXATE [Concomitant]
     Indication: RHEUMATOID ARTHRITIS
     Route: 048
     Dates: start: 20081005, end: 20101001
  2. LOXOPROFEN SODIUM HYDRATE [Concomitant]
     Indication: RHEUMATOID ARTHRITIS
     Route: 048
     Dates: start: 20090325, end: 20101001
  3. REBAMIPIDE [Interacting]
     Indication: PROPHYLAXIS
  4. REBAMIPIDE [Interacting]
     Indication: GASTROINTESTINAL DISORDER
     Route: 048
     Dates: start: 20090325, end: 20101001
  5. HUMIRA [Suspect]
     Indication: RHEUMATOID ARTHRITIS
     Route: 058
     Dates: start: 20100407, end: 20101001

REACTIONS (2)
  - SKIN LESION [None]
  - RASH [None]
